FAERS Safety Report 9357611 (Version 1)
Quarter: 2013Q2

REPORT INFORMATION
  Report Type: Spontaneous
  Country: US (occurrence: US)
  Receive Date: 20130620
  Receipt Date: 20130620
  Transmission Date: 20140414
  Serious: Yes (Death)
  Sender: FDA-Public Use
  Company Number: US-AMGEN-USASP2013042927

PATIENT
  Age: 60 Year
  Sex: Female

DRUGS (2)
  1. NEUPOGEN [Suspect]
     Indication: NEUTROPENIA
     Dosage: UNK
     Route: 065
     Dates: start: 20130205
  2. CHEMOTHERAPEUTICS [Concomitant]
     Indication: BREAST CANCER STAGE IV
     Dosage: UNK

REACTIONS (1)
  - Death [Fatal]
